FAERS Safety Report 21717750 (Version 2)
Quarter: 2022Q4

REPORT INFORMATION
  Report Type: Spontaneous
  Country: US (occurrence: US)
  Receive Date: 20221212
  Receipt Date: 20221219
  Transmission Date: 20230112
  Serious: No
  Sender: FDA-Public Use
  Company Number: US-GBT-015497

PATIENT
  Age: 8 Year
  Sex: Female

DRUGS (4)
  1. OXBRYTA [Suspect]
     Active Substance: VOXELOTOR
     Indication: Sickle cell disease
     Route: 048
     Dates: start: 20220810
  2. OXBRYTA [Suspect]
     Active Substance: VOXELOTOR
     Indication: Sickle cell disease
     Route: 065
     Dates: start: 20220817
  3. OXBRYTA [Suspect]
     Active Substance: VOXELOTOR
     Indication: Sickle cell disease
     Route: 065
     Dates: start: 20220815
  4. OXBRYTA [Suspect]
     Active Substance: VOXELOTOR
     Indication: Sickle cell disease
     Route: 065
     Dates: start: 20220816

REACTIONS (6)
  - Vomiting [Recovered/Resolved]
  - Therapy interrupted [Unknown]
  - Fatigue [Not Recovered/Not Resolved]
  - Product use complaint [Recovered/Resolved]
  - Off label use [Unknown]
  - Depressed mood [Unknown]

NARRATIVE: CASE EVENT DATE: 20220801
